FAERS Safety Report 9346709 (Version 1)
Quarter: 2013Q2

REPORT INFORMATION
  Report Type: Spontaneous
  Country: FR (occurrence: FR)
  Receive Date: 20130613
  Receipt Date: 20130613
  Transmission Date: 20140414
  Serious: Yes (Other)
  Sender: FDA-Public Use
  Company Number: FR-TEVA-411440ISR

PATIENT
  Age: 88 Year
  Sex: Male

DRUGS (6)
  1. FUROSEMIDE TEVA 40 MG [Suspect]
     Indication: HYPERTENSION
  2. GLUCOPHAGE [Concomitant]
  3. CARDENSIEL [Concomitant]
  4. AMLODIPINE [Concomitant]
     Dosage: 1 DOSAGE FORMS DAILY; PATCH
  5. AMLODIPINE [Concomitant]
  6. RAMIPRIL [Concomitant]

REACTIONS (4)
  - Chest discomfort [Not Recovered/Not Resolved]
  - Local swelling [Not Recovered/Not Resolved]
  - Fatigue [Not Recovered/Not Resolved]
  - Sleep disorder [Not Recovered/Not Resolved]
